FAERS Safety Report 6387423-9 (Version None)
Quarter: 2009Q3

REPORT INFORMATION
  Report Type: 
  Country: None (occurrence: None)
  Receive Date: 20090930
  Receipt Date: 20090918
  Transmission Date: 20100115
  Serious: Yes (Hospitalization, Other)
  Sender: FDA-Public Use
  Company Number: 231025J09USA

PATIENT
  Age: 32 Year
  Sex: Female

DRUGS (12)
  1. REBIF [Suspect]
     Indication: MULTIPLE SCLEROSIS
     Dosage: 44 MCG, 3 IN 1 WEEKS, SUBCUTANEOUS
     Route: 058
     Dates: start: 20081010
  2. LEVOCYL (LEVOTHYROXINE SODIUM) [Concomitant]
  3. CALCIUM WITH VITAMIN D (CALCIUM WITH VITAMIN D) [Concomitant]
  4. MULTIVITAMIN [Concomitant]
  5. MAGNESIUM (MAGNESIUM HYDROXIDE) [Concomitant]
  6. CYMBALTA [Concomitant]
  7. ZYRTEC [Concomitant]
  8. YAZ [Concomitant]
  9. TYLENOL [Concomitant]
  10. SKELAXIN [Concomitant]
  11. NAPRELAN [Concomitant]
  12. VITAMIN B12 (CYANOBALAMIN) [Concomitant]

REACTIONS (6)
  - MACULOPATHY [None]
  - MULTIPLE SCLEROSIS RELAPSE [None]
  - NEUROPATHY PERIPHERAL [None]
  - RETINAL ISCHAEMIA [None]
  - VERTIGO [None]
  - VISUAL IMPAIRMENT [None]
